FAERS Safety Report 18799274 (Version 1)
Quarter: 2021Q1

REPORT INFORMATION
  Report Type: Spontaneous
  Country: US (occurrence: US)
  Receive Date: 20210127
  Receipt Date: 20210127
  Transmission Date: 20210419
  Serious: Yes (Hospitalization)
  Sender: FDA-Public Use
  Company Number: None

PATIENT
  Sex: Female

DRUGS (30)
  1. SYMBICORT [Concomitant]
     Active Substance: BUDESONIDE\FORMOTEROL FUMARATE DIHYDRATE
  2. ASPIRIN EC [Concomitant]
     Active Substance: ASPIRIN
  3. INSULIN LISP [Concomitant]
  4. LEVOFLOXACIN. [Concomitant]
     Active Substance: LEVOFLOXACIN
  5. NASAL MIST [Concomitant]
     Active Substance: OXYMETAZOLINE HYDROCHLORIDE
  6. TOPROL XL [Concomitant]
     Active Substance: METOPROLOL SUCCINATE
  7. VISINE OP [Concomitant]
  8. VITAMIN D [Concomitant]
     Active Substance: VITAMIN D NOS
  9. DUONEB [Concomitant]
     Active Substance: ALBUTEROL SULFATE\IPRATROPIUM BROMIDE
  10. CRANBERRY. [Concomitant]
     Active Substance: CRANBERRY
  11. ELIQUIS [Concomitant]
     Active Substance: APIXABAN
  12. CLOPIDOGREL [Concomitant]
     Active Substance: CLOPIDOGREL BISULFATE
  13. LEVOTHYROXIN [Concomitant]
     Active Substance: LEVOTHYROXINE
  14. PREDNISONE. [Concomitant]
     Active Substance: PREDNISONE
  15. PROVENTIL HFA [Concomitant]
     Active Substance: ALBUTEROL SULFATE
  16. TOUJEO MAX [Concomitant]
     Active Substance: INSULIN GLARGINE
  17. TRULICITY [Concomitant]
     Active Substance: DULAGLUTIDE
  18. LANTUS SOLOS [Concomitant]
  19. MOTRIN IB [Concomitant]
     Active Substance: IBUPROFEN
  20. SPIRIVA [Concomitant]
     Active Substance: TIOTROPIUM BROMIDE MONOHYDRATE
  21. TYLENOL [Concomitant]
     Active Substance: ACETAMINOPHEN
  22. REPATHA [Suspect]
     Active Substance: EVOLOCUMAB
     Indication: TYPE 2 DIABETES MELLITUS
     Route: 058
     Dates: start: 20180503
  23. HUMALOG KWIK [Concomitant]
  24. NYSTOP [Concomitant]
     Active Substance: NYSTATIN
  25. PANTOPRAZOLE [Concomitant]
     Active Substance: PANTOPRAZOLE
  26. PEPCID [Concomitant]
     Active Substance: FAMOTIDINE
  27. LOSARTAN POT [Concomitant]
     Active Substance: LOSARTAN POTASSIUM
  28. MECLIZINE [Concomitant]
     Active Substance: MECLIZINE HYDROCHLORIDE
  29. METOPROLOL ER [Concomitant]
     Active Substance: METOPROLOL SUCCINATE
  30. DOXYCYCL HYC [Concomitant]

REACTIONS (2)
  - Haemorrhage [None]
  - Pneumonia [None]
